FAERS Safety Report 7627643-6 (Version None)
Quarter: 2011Q3

REPORT INFORMATION
  Report Type: 
  Country: None (occurrence: None)
  Receive Date: 20110721
  Receipt Date: 20110712
  Transmission Date: 20111222
  Serious: Yes (Hospitalization)
  Sender: FDA-Public Use
  Company Number: FR-GENENTECH-321564

PATIENT
  Sex: Male

DRUGS (5)
  1. CISPLATIN [Suspect]
     Indication: MANTLE CELL LYMPHOMA
     Dosage: 190 MG, UNK
     Route: 042
     Dates: start: 20110610, end: 20110610
  2. CRESTOR [Concomitant]
     Indication: HYPERLIPIDAEMIA
     Dosage: UNK
     Route: 048
  3. DEXAMETHASONE [Suspect]
     Indication: MANTLE CELL LYMPHOMA
     Dosage: 40 MG, UNK
     Route: 065
     Dates: start: 20110610, end: 20110613
  4. RITUXIMAB [Suspect]
     Indication: MANTLE CELL LYMPHOMA
     Dosage: 720 MG, UNK
     Route: 042
     Dates: start: 20110613, end: 20110613
  5. CYTARABINE [Suspect]
     Indication: MANTLE CELL LYMPHOMA
     Dosage: 3800 MG, UNK
     Route: 042
     Dates: start: 20110610, end: 20110611

REACTIONS (2)
  - HYPOACUSIS [None]
  - PYREXIA [None]
